FAERS Safety Report 10606581 (Version 4)
Quarter: 2015Q1

REPORT INFORMATION
  Report Type: Spontaneous
  Country: US (occurrence: US)
  Receive Date: 20141125
  Receipt Date: 20150311
  Transmission Date: 20150720
  Serious: Yes (Disabling)
  Sender: FDA-Public Use
  Company Number: US-009507513-1204USA04454

PATIENT
  Sex: Male
  Weight: 97.96 kg

DRUGS (1)
  1. PROPECIA [Suspect]
     Active Substance: FINASTERIDE
     Indication: ANDROGENETIC ALOPECIA
     Dosage: 1 MG, QD
     Route: 048
     Dates: start: 20061017, end: 20061214

REACTIONS (25)
  - Cognitive disorder [Not Recovered/Not Resolved]
  - Ejaculation disorder [Not Recovered/Not Resolved]
  - Hyperglycaemia [Not Recovered/Not Resolved]
  - Malaise [Unknown]
  - Metabolic syndrome [Unknown]
  - Gynaecomastia [Not Recovered/Not Resolved]
  - Gynaecomastia [Unknown]
  - Sexual dysfunction [Not Recovered/Not Resolved]
  - Anxiety [Not Recovered/Not Resolved]
  - Ejaculation failure [Not Recovered/Not Resolved]
  - Libido decreased [Not Recovered/Not Resolved]
  - Depression [Not Recovered/Not Resolved]
  - Hyperlipidaemia [Not Recovered/Not Resolved]
  - Malaise [Unknown]
  - Muscle fatigue [Unknown]
  - Drug hypersensitivity [Unknown]
  - Large intestine polyp [Unknown]
  - Infection [Unknown]
  - Nausea [Unknown]
  - Erectile dysfunction [Not Recovered/Not Resolved]
  - Fat redistribution [Unknown]
  - Weight increased [Unknown]
  - Hypertension [Not Recovered/Not Resolved]
  - Myalgia [Unknown]
  - Personality change [Unknown]

NARRATIVE: CASE EVENT DATE: 2006
